FAERS Safety Report 11363072 (Version 1)
Quarter: 2015Q3

REPORT INFORMATION
  Report Type: Spontaneous
  Country: NL (occurrence: None)
  Receive Date: 20150807
  Receipt Date: 20150807
  Transmission Date: 20151125
  Serious: Yes (Disabling)
  Sender: FDA-Public Use
  Company Number: NL-AGG-07-2015-0608

PATIENT
  Age: 36 Year
  Sex: Male
  Weight: 96 kg

DRUGS (4)
  1. CLOPIDOGREL [Concomitant]
     Active Substance: CLOPIDOGREL BISULFATE
  2. TIROFIBAN HCI [Suspect]
     Active Substance: TIROFIBAN HYDROCHLORIDE
     Indication: ANTIPLATELET THERAPY
     Dosage: 1 X 9 ML EVERY 1 DAY(S) INTRAVENOUS B
     Route: 040
     Dates: start: 20070804, end: 20070804
  3. STATIN [Concomitant]
     Active Substance: UNSPECIFIED INGREDIENT
  4. TIROFIBAN HCI [Suspect]
     Active Substance: TIROFIBAN HYDROCHLORIDE
     Indication: ANTIPLATELET THERAPY
     Dosage: 1 X 16 ML EVERY 1 HOUR(S) INTRAVENOUS
     Route: 042
     Dates: start: 20070804, end: 20070805

REACTIONS (1)
  - Atrial fibrillation [None]

NARRATIVE: CASE EVENT DATE: 20080201
